FAERS Safety Report 6090729-4 (Version None)
Quarter: 2009Q1

REPORT INFORMATION
  Report Type: 
  Country: None (occurrence: None)
  Receive Date: 20090224
  Receipt Date: 20090205
  Transmission Date: 20090719
  Serious: No
  Sender: FDA-Public Use
  Company Number: US-ABBOTT-09P-163-0501118-00

PATIENT
  Sex: Male
  Weight: 90.8 kg

DRUGS (3)
  1. SIMCOR [Suspect]
     Indication: HIGH DENSITY LIPOPROTEIN DECREASED
     Dates: start: 20080720
  2. SIMCOR [Suspect]
     Indication: LOW DENSITY LIPOPROTEIN INCREASED
     Route: 048
     Dates: start: 20090101, end: 20090101
  3. SIMCOR [Suspect]
     Indication: BLOOD TRIGLYCERIDES INCREASED

REACTIONS (17)
  - ASTHENIA [None]
  - COLD SWEAT [None]
  - DEHYDRATION [None]
  - DYSPHAGIA [None]
  - ERYTHEMA [None]
  - EYE PAIN [None]
  - EYE SWELLING [None]
  - FATIGUE [None]
  - FLATULENCE [None]
  - FLUSHING [None]
  - HYPERHIDROSIS [None]
  - HYPOTENSION [None]
  - INFLUENZA LIKE ILLNESS [None]
  - LOSS OF CONSCIOUSNESS [None]
  - PARAESTHESIA [None]
  - SWELLING FACE [None]
  - SYNCOPE [None]
